FAERS Safety Report 14967510 (Version 2)
Quarter: 2018Q3

REPORT INFORMATION
  Report Type: Spontaneous
  Country: US (occurrence: US)
  Receive Date: 20180604
  Receipt Date: 20180705
  Transmission Date: 20181010
  Serious: Yes (Other)
  Sender: FDA-Public Use
  Company Number: US-APOTEX-2018AP014903

PATIENT
  Sex: Female

DRUGS (1)
  1. LITHIUM CARBONATE. [Suspect]
     Active Substance: LITHIUM CARBONATE
     Indication: PRODUCT USED FOR UNKNOWN INDICATION
     Dosage: UNK
     Route: 065

REACTIONS (11)
  - Haematochezia [Unknown]
  - Adverse drug reaction [Unknown]
  - Hallucination, visual [Unknown]
  - Cerebral disorder [Unknown]
  - Tongue discomfort [Unknown]
  - Swelling [Unknown]
  - Apparent death [Unknown]
  - Burning sensation [Unknown]
  - Unevaluable event [Unknown]
  - Overdose [Unknown]
  - Vomiting [Unknown]
